FAERS Safety Report 22066699 (Version 2)
Quarter: 2023Q1

REPORT INFORMATION
  Report Type: Report from Study
  Country: US (occurrence: US)
  Receive Date: 20230306
  Receipt Date: 20230323
  Transmission Date: 20230417
  Serious: Yes (Other)
  Sender: FDA-Public Use
  Company Number: US-BAUSCH-BL-2023-003622

PATIENT
  Age: 91 Year
  Sex: Male

DRUGS (28)
  1. XIFAXAN [Suspect]
     Active Substance: RIFAXIMIN
     Indication: Product used for unknown indication
     Route: 048
     Dates: start: 2020
  2. LOPRESSOR [Concomitant]
     Active Substance: METOPROLOL TARTRATE
     Indication: Product used for unknown indication
     Dosage: TAKE 0.5 TABLET BY MOUTH DAILY
     Route: 048
  3. ROCALTROL [Concomitant]
     Active Substance: CALCITRIOL
     Indication: Product used for unknown indication
     Dosage: 1 CAPSULE BY MOUTH 3 DAYS A WEEK
     Route: 048
  4. MIRALAX [Concomitant]
     Active Substance: POLYETHYLENE GLYCOL 3350
     Indication: Product used for unknown indication
     Dosage: SCOOP POWDER, STIR, DISSOLVE POWDER IN ANY 4-8 OUNCES OF BEVERAGE, THEN DRINK, HOLD FOR LOOSE STOOLS
     Route: 048
  5. ALBUTEROL [Concomitant]
     Active Substance: ALBUTEROL
     Indication: Dyspnoea
     Dosage: 108 (90 BASE) MCG ACT/INHALER, 2 PUFFS IN LUNGS EVERY 4 HOUR AS NEEDED
     Route: 055
  6. ALBUTEROL [Concomitant]
     Active Substance: ALBUTEROL
     Indication: Wheezing
  7. CRESTOR [Concomitant]
     Active Substance: ROSUVASTATIN CALCIUM
     Indication: Product used for unknown indication
     Dosage: AT BEDTIME
     Route: 048
  8. KLOR CON M [Concomitant]
     Active Substance: POTASSIUM CHLORIDE
     Indication: Product used for unknown indication
     Dosage: ER TABLET, TAKE ALONG WITH TORSEMIDE, TAKE WITH MEAL (DO NOT CRUSH)
     Route: 048
  9. INSULIN LISPRO [Concomitant]
     Active Substance: INSULIN LISPRO
     Indication: Product used for unknown indication
     Dosage: 6 UNIT INTO SKIN DAILY BEFORE BREAKFAST, 7 UNIT DAILY BEFORE LUNCH AND 7 UNIT DAILY BEFORE DINNER
     Route: 058
  10. NITROSTAT [Concomitant]
     Active Substance: NITROGLYCERIN
     Indication: Chest pain
     Dosage: EVERY 5 MINUTES AS NEEDED
     Route: 060
  11. TEMOVATE [Concomitant]
     Active Substance: CLOBETASOL PROPIONATE
     Indication: Product used for unknown indication
     Dosage: APPLY TOPICALLY 2 TIMES DAILY
     Route: 061
  12. SENOKOT [Concomitant]
     Active Substance: SENNOSIDES
     Indication: Product used for unknown indication
     Dosage: TAKE 1 TABLET BY MOUTH DAILY
     Route: 048
  13. LANTUS SOLOSTAR [Concomitant]
     Active Substance: INSULIN GLARGINE
     Indication: Product used for unknown indication
     Dosage: PEN-INJECTOR, INJECT 18 UNITS INTO THE SKIN DAILY, PRIME 2 UNITS BEFORE EACH DOSE
     Route: 058
  14. CYANOCOBALAMIN [Concomitant]
     Active Substance: CYANOCOBALAMIN
     Indication: Product used for unknown indication
     Route: 048
  15. DEMADEX [Concomitant]
     Active Substance: TORSEMIDE
     Indication: Product used for unknown indication
     Dosage: TAKE 4 TABS BY MOUTH DAILY
     Route: 048
  16. ARISTOCORT [Concomitant]
     Active Substance: TRIAMCINOLONE DIACETATE
     Indication: Product used for unknown indication
     Dosage: APPLY TOPICALLY 2 TIMES DAILY, MOISTURIZING CREAM OVER THE TOP OF THE OINTMENT
     Route: 061
  17. CORTIZONE 10 [Concomitant]
     Active Substance: HYDROCORTISONE
     Indication: Product used for unknown indication
     Dosage: APPLY TOPICALLY 2 TIMES DAILY
     Route: 061
  18. ANORO ELLIPTA [Concomitant]
     Active Substance: UMECLIDINIUM BROMIDE\VILANTEROL TRIFENATATE
     Indication: Product used for unknown indication
     Dosage: 62.5-25 MCG/INH INHALER, 1 PUFF INTO THE LUNGS DAILY
     Route: 055
  19. TYLENOL [Concomitant]
     Active Substance: ACETAMINOPHEN
     Indication: Pyrexia
     Dosage: EVERY 4 HOUR AS NEEDED
     Route: 054
  20. PROTONIX [Concomitant]
     Active Substance: PANTOPRAZOLE SODIUM
     Indication: Product used for unknown indication
     Route: 048
  21. DELTASONE [Concomitant]
     Active Substance: PREDNISONE
     Indication: Product used for unknown indication
     Dosage: TAKE 2 MG BY MOUTH DAILY
     Route: 048
  22. GLUCAGON [Concomitant]
     Active Substance: GLUCAGON
     Indication: Blood glucose decreased
     Dosage: INJECT 1 MG AS DIRECTED DAILY AS NEEDED
  23. ECOTRIN [Concomitant]
     Active Substance: ASPIRIN
     Indication: Product used for unknown indication
     Dosage: EC TABLET
     Route: 048
  24. VITAMIN D3 [Concomitant]
     Active Substance: CHOLECALCIFEROL
     Indication: Product used for unknown indication
     Dosage: 25 MCG (1000 UNITS)
     Route: 048
  25. FLONASE [Concomitant]
     Active Substance: FLUTICASONE PROPIONATE
     Indication: Hypersensitivity
     Dosage: SPRAY 2 TIMES DAILY AS NEEDED
     Route: 045
  26. COENZYME Q10 [Concomitant]
     Active Substance: DIETARY SUPPLEMENT\UBIDECARENONE
     Indication: Product used for unknown indication
     Route: 048
  27. ATROVENT [Concomitant]
     Active Substance: IPRATROPIUM BROMIDE
     Indication: Rhinitis
     Dosage: 3 TIMES DAILY AS NEEDED
     Route: 045
  28. VITAMINS [Concomitant]
     Active Substance: VITAMINS
     Indication: Product used for unknown indication
     Route: 048

REACTIONS (10)
  - Chronic left ventricular failure [Unknown]
  - Hypervolaemia [Unknown]
  - Diastolic dysfunction [Unknown]
  - Large intestine polyp [Unknown]
  - Colorectal adenoma [Unknown]
  - Haemorrhoids [Unknown]
  - Diverticulum intestinal [Unknown]
  - Hepatic steatosis [Unknown]
  - Treatment noncompliance [Unknown]
  - Product use issue [Unknown]

NARRATIVE: CASE EVENT DATE: 20210408
